FAERS Safety Report 15804701 (Version 1)
Quarter: 2019Q1

REPORT INFORMATION
  Report Type: Spontaneous
  Country: US (occurrence: US)
  Receive Date: 20190109
  Receipt Date: 20190109
  Transmission Date: 20190417
  Serious: Yes (Other)
  Sender: FDA-Public Use
  Company Number: US-AMGEN-USASP2019002185

PATIENT
  Age: 21 Year
  Sex: Female

DRUGS (5)
  1. DACARBAZINE. [Concomitant]
     Active Substance: DACARBAZINE
     Dosage: UNK
  2. NEULASTA [Suspect]
     Active Substance: PEGFILGRASTIM
     Indication: PRODUCT USED FOR UNKNOWN INDICATION
     Dosage: UNK
     Route: 065
  3. BLEOMYCIN [Concomitant]
     Active Substance: BLEOMYCIN SULFATE
     Dosage: UNK
  4. ADRIAMYCIN [Concomitant]
     Active Substance: DOXORUBICIN HYDROCHLORIDE
     Dosage: UNK
  5. VINBLASTINE [Concomitant]
     Active Substance: VINBLASTINE
     Dosage: UNK

REACTIONS (1)
  - Anaphylactic reaction [Recovering/Resolving]
